FAERS Safety Report 5145407-2 (Version None)
Quarter: 2006Q4

REPORT INFORMATION
  Report Type: 
  Country: None (occurrence: None)
  Receive Date: 20061031
  Receipt Date: 20061018
  Transmission Date: 20070319
  Serious: Yes (Other)
  Sender: FDA-Public Use
  Company Number: 2006128275

PATIENT
  Age: 53 Year
  Sex: Female
  Weight: 149.9 kg

DRUGS (6)
  1. BENADRYL [Suspect]
     Indication: RASH
     Dosage: 50 MG NIGHTLY, ORAL
     Route: 048
     Dates: start: 20060825, end: 20060908
  2. PEGINTERFERON ALFA-2A                 (PEGINTERFERON ALFA-2A) [Suspect]
     Indication: HEPATITIS C
     Dosage: 180 MCG 1 PER WEEK, SUBCUTANEOUS
     Route: 058
     Dates: start: 20060815
  3. RIVAVIRIN           (RIBAVIRIN) [Suspect]
     Indication: HEPATITIS C
     Dosage: 1000 MG DAILY, ORAL
     Route: 048
     Dates: start: 20060815
  4. TRAMADOL HCL [Concomitant]
  5. HYZAAR [Concomitant]
  6. CITALOPRAM HYDRBROMIDE [Concomitant]

REACTIONS (3)
  - ABNORMAL BEHAVIOUR [None]
  - ANGER [None]
  - PSYCHOTIC DISORDER [None]
